FAERS Safety Report 4404294-8 (Version None)
Quarter: 2004Q3

REPORT INFORMATION
  Report Type: 
  Country: None (occurrence: None)
  Receive Date: 20040721
  Receipt Date: 20040721
  Transmission Date: 20050211
  Serious: No
  Sender: FDA-Public Use
  Company Number: None

PATIENT
  Age: 64 Year
  Sex: Male
  Weight: 78 kg

DRUGS (9)
  1. IRON-DEXTRAN COMPLEX INJ [Suspect]
     Indication: IRON DEFICIENCY
     Dosage: 50 MG INTRAVEN
     Route: 042
     Dates: start: 20040224, end: 20040224
  2. VITAMIN E [Concomitant]
  3. DARBEPOETIN ALFA [Concomitant]
  4. AMLODIPINE BESYLATE [Concomitant]
  5. ASPIRIN [Concomitant]
  6. CLONIDINE HCL [Concomitant]
  7. LABETALOL HCL [Concomitant]
  8. CALCIUM ACETATE [Concomitant]
  9. NEPRHO-VITE [Concomitant]

REACTIONS (2)
  - HYPERHIDROSIS [None]
  - HYPOTENSION [None]
